FAERS Safety Report 6530950-1 (Version None)
Quarter: 2010Q1

REPORT INFORMATION
  Report Type: 
  Country: None (occurrence: None)
  Receive Date: 20100108
  Receipt Date: 20090707
  Transmission Date: 20100710
  Serious: No
  Sender: FDA-Public Use
  Company Number: A0795753A

PATIENT
  Age: 70 Year
  Sex: Female

DRUGS (3)
  1. LOVAZA [Suspect]
     Dosage: 2CAP TWICE PER DAY
     Route: 048
     Dates: start: 20090101
  2. LIPITOR [Concomitant]
  3. SPIRIVA [Concomitant]

REACTIONS (3)
  - INJURY [None]
  - LACERATION [None]
  - SKIN LACERATION [None]
